FAERS Safety Report 8217379-5 (Version None)
Quarter: 2012Q1

REPORT INFORMATION
  Report Type: 
  Country: None (occurrence: None)
  Receive Date: 20120319
  Receipt Date: 20120309
  Transmission Date: 20120608
  Serious: Yes (Other)
  Sender: FDA-Public Use
  Company Number: US-BAYER-201040191NA

PATIENT
  Age: 40 Year
  Sex: Female
  Weight: 68.481 kg

DRUGS (1)
  1. MIRENA [Suspect]
     Indication: CONTRACEPTION
     Dosage: 20 MCG/24HR, CONT
     Route: 015
     Dates: start: 20070628, end: 20101107

REACTIONS (5)
  - ECTOPIC PREGNANCY [None]
  - ABDOMINAL PAIN [None]
  - DEVICE DISLOCATION [None]
  - AMENORRHOEA [None]
  - HAEMORRHAGE IN PREGNANCY [None]
